FAERS Safety Report 13416734 (Version 2)
Quarter: 2017Q2

REPORT INFORMATION
  Report Type: Spontaneous
  Country: CN (occurrence: CN)
  Receive Date: 20170406
  Receipt Date: 20170419
  Transmission Date: 20170830
  Serious: Yes (Hospitalization)
  Sender: FDA-Public Use
  Company Number: CN-SA-2017SA056008

PATIENT
  Age: 80 Year
  Sex: Female
  Weight: 53 kg

DRUGS (7)
  1. LANTUS [Suspect]
     Active Substance: INSULIN GLARGINE
     Indication: DIABETES MELLITUS
     Route: 058
     Dates: start: 20170309, end: 20170314
  2. BETALOC [Concomitant]
     Active Substance: METOPROLOL TARTRATE
  3. SHI HUI DA [Concomitant]
     Active Substance: LEVAMLODIPINE BESYLATE
     Indication: HYPERTENSION
     Route: 048
     Dates: start: 2014
  4. GLUCOBAY [Concomitant]
     Active Substance: ACARBOSE
     Indication: DIABETES MELLITUS
     Dosage: 1.5TAB IN THE MORNING, 1 TAB IN THE AFTERNOON AND 1TAB IN THE EVENING
     Route: 048
  5. INDAPAMIDE. [Concomitant]
     Active Substance: INDAPAMIDE
  6. GLUCOBAY [Concomitant]
     Active Substance: ACARBOSE
     Indication: DIABETES MELLITUS
     Dosage: 2 TAB IN THE MORNING, 2TAB IN THE AFTERNOON AND 1TAB IN THE EVENING
     Route: 048
     Dates: start: 201703
  7. LANTUS [Suspect]
     Active Substance: INSULIN GLARGINE
     Indication: DIABETES MELLITUS
     Route: 058
     Dates: start: 2016, end: 201703

REACTIONS (5)
  - Blood pressure increased [Recovered/Resolved]
  - Head discomfort [Unknown]
  - Injection site erythema [Recovered/Resolved]
  - Blood glucose increased [Recovering/Resolving]
  - Dry mouth [Recovered/Resolved]

NARRATIVE: CASE EVENT DATE: 2016
